FAERS Safety Report 4287862-6 (Version None)
Quarter: 2004Q1

REPORT INFORMATION
  Report Type: 
  Country: None (occurrence: None)
  Receive Date: 20040209
  Receipt Date: 20031017
  Transmission Date: 20041129
  Serious: No
  Sender: FDA-Public Use
  Company Number: US-GLAXOSMITHKLINE-A0430586A

PATIENT
  Sex: Female

DRUGS (3)
  1. PAXIL [Suspect]
     Indication: MAJOR DEPRESSION
     Dosage: 50MG PER DAY
     Route: 048
  2. KLONOPIN [Concomitant]
  3. LITHIUM CARBONATE [Concomitant]

REACTIONS (1)
  - THERAPEUTIC RESPONSE DELAYED [None]
